FAERS Safety Report 8093239-8 (Version None)
Quarter: 2012Q1

REPORT INFORMATION
  Report Type: 
  Country: None (occurrence: None)
  Receive Date: 20120128
  Receipt Date: 20110920
  Transmission Date: 20120608
  Serious: Yes (Other)
  Sender: FDA-Public Use
  Company Number: US-ABBOTT-11P-163-0728718-00

PATIENT
  Sex: Female
  Weight: 59.474 kg

DRUGS (9)
  1. ALPRAZOLAM [Concomitant]
     Indication: ANXIETY
  2. CYMBALTA [Concomitant]
     Indication: BACK PAIN
  3. LUNESTA [Concomitant]
     Indication: PRODUCT USED FOR UNKNOWN INDICATION
  4. OMEPRAZOLE [Concomitant]
     Indication: PRODUCT USED FOR UNKNOWN INDICATION
  5. FOSAMAX [Concomitant]
     Indication: OSTEOPOROSIS
  6. HUMIRA [Suspect]
     Indication: RHEUMATOID ARTHRITIS
     Route: 058
     Dates: start: 20070801, end: 20110401
  7. OMEPRAZOLE [Concomitant]
     Indication: GASTROOESOPHAGEAL REFLUX DISEASE
  8. NAPROXEN [Concomitant]
     Indication: PAIN
  9. SULFASALAZINE [Concomitant]
     Indication: RHEUMATOID ARTHRITIS

REACTIONS (2)
  - MALIGNANT MELANOMA STAGE II [None]
  - BENIGN NEOPLASM OF SKIN [None]
